FAERS Safety Report 8560290 (Version 3)
Quarter: 2013Q4

REPORT INFORMATION
  Report Type: Report from Study
  Country: JP (occurrence: JP)
  Receive Date: 20120514
  Receipt Date: 20131107
  Transmission Date: 20140711
  Serious: Yes (Other)
  Sender: FDA-Public Use
  Company Number: JP-VERTEX PHARMACEUTICALS INC.-AE-2012-006462

PATIENT
  Age: 72 Year
  Sex: Male

DRUGS (10)
  1. VX-950 (TELAPREVIR) [Suspect]
     Indication: CHRONIC HEPATITIS C
     Dosage: 2250 MG, QD
     Route: 048
     Dates: start: 20120306, end: 20120316
  2. REBETOL [Suspect]
     Indication: CHRONIC HEPATITIS C
     Dosage: 800 MG, QD
     Route: 048
     Dates: start: 20120306, end: 20120316
  3. PEGINTRON [Suspect]
     Indication: CHRONIC HEPATITIS C
     Dosage: 1.44 ?G/KG, QW
     Route: 058
     Dates: start: 20120306, end: 20120313
  4. AMARYL [Concomitant]
     Dosage: 1.5 MG, QD
     Route: 048
  5. GLACTIV [Concomitant]
     Dosage: 50 MG, QD
     Route: 048
  6. SEIBULE [Concomitant]
     Dosage: 150 MG, QD
     Route: 048
  7. ACTOS [Concomitant]
     Dosage: 15 MG, QD
     Route: 048
  8. BLOPRESS [Concomitant]
     Dosage: 12 MG, QD
     Route: 048
  9. ALOSITOL [Concomitant]
     Dosage: 200 MG, QD
     Route: 048
  10. URSO [Concomitant]
     Dosage: 600 MG, QD
     Route: 048

REACTIONS (1)
  - Renal impairment [Recovered/Resolved]
